FAERS Safety Report 9303014 (Version 1)
Quarter: 2013Q2

REPORT INFORMATION
  Report Type: Spontaneous
  Country: AT (occurrence: AT)
  Receive Date: 20130522
  Receipt Date: 20130522
  Transmission Date: 20140414
  Serious: Yes (Other)
  Sender: FDA-Public Use
  Company Number: AT-PFIZER INC-2013151435

PATIENT
  Age: 50 Year
  Sex: Female
  Weight: 60 kg

DRUGS (7)
  1. LYRICA [Suspect]
     Indication: GENERALISED ANXIETY DISORDER
     Dosage: 25 MG, UNK
     Dates: start: 20130406, end: 20130510
  2. CIPRALEX [Concomitant]
     Indication: GENERALISED ANXIETY DISORDER
     Dosage: 10 MG, UNK
  3. CIPRALEX [Concomitant]
     Indication: DEPRESSION
  4. TRITTICO [Concomitant]
     Indication: GENERALISED ANXIETY DISORDER
     Dosage: 100 MG, UNK
  5. TRITTICO [Concomitant]
     Indication: DEPRESSION
  6. INDAPAMIDE [Concomitant]
     Indication: GENERALISED ANXIETY DISORDER
     Dosage: 1.5 MG, UNK
  7. INDAPAMIDE [Concomitant]
     Indication: DEPRESSION

REACTIONS (6)
  - Urinary retention [Unknown]
  - Generalised oedema [Recovered/Resolved]
  - Constipation [Unknown]
  - Blood pressure increased [Recovered/Resolved]
  - Thirst [Recovered/Resolved]
  - Hypoaesthesia [Recovered/Resolved]
